FAERS Safety Report 5233147-0 (Version None)
Quarter: 2007Q1

REPORT INFORMATION
  Report Type: 
  Country: None (occurrence: None)
  Receive Date: 20061204
  Receipt Date: 20061023
  Transmission Date: 20070707
  Serious: No
  Sender: FDA-Public Use
  Company Number: 2006-BP-12459BP

PATIENT
  Sex: Male

DRUGS (5)
  1. SPIRIVA [Suspect]
     Indication: EMPHYSEMA
     Dosage: 18 MCG (18 MCG, 1 IN 1 D), IH
     Route: 055
     Dates: start: 20041001
  2. PREDNISONE TAB [Concomitant]
  3. AZMACORT [Concomitant]
  4. THEOPHYLLINE [Concomitant]
  5. ALBUTEROL INHALER (SALBUTAMOL) [Concomitant]

REACTIONS (3)
  - ANXIETY [None]
  - PSYCHOMOTOR HYPERACTIVITY [None]
  - TOTAL LUNG CAPACITY DECREASED [None]
